FAERS Safety Report 5887201-0 (Version None)
Quarter: 2008Q3

REPORT INFORMATION
  Report Type: 
  Country: None (occurrence: None)
  Receive Date: 20080915
  Receipt Date: 20080827
  Transmission Date: 20090109
  Serious: Yes (Hospitalization)
  Sender: FDA-Public Use
  Company Number: 280003L08JPN

PATIENT
  Age: 30 Year

DRUGS (3)
  1. UROFOLLITROPIN [Suspect]
  2. CLOMIPHENE CITRATE [Suspect]
  3. CABERGOLINE [Concomitant]

REACTIONS (5)
  - ABORTION THREATENED [None]
  - CAESAREAN SECTION [None]
  - DRUG EXPOSURE DURING PREGNANCY [None]
  - PREMATURE LABOUR [None]
  - TWIN PREGNANCY [None]
